FAERS Safety Report 17259689 (Version 1)
Quarter: 2020Q1

REPORT INFORMATION
  Report Type: Spontaneous
  Country: DK (occurrence: DK)
  Receive Date: 20200110
  Receipt Date: 20200110
  Transmission Date: 20200409
  Serious: Yes (Hospitalization)
  Sender: FDA-Public Use
  Company Number: DK-TEVA-2020-DK-1165449

PATIENT
  Age: 88 Year
  Sex: Female

DRUGS (7)
  1. LETROZOLE. [Concomitant]
     Active Substance: LETROZOLE
     Indication: BREAST CANCER
     Dosage: STRENGHT  2.5 MG.
     Route: 048
     Dates: start: 20150625
  2. LOSARTAN. [Concomitant]
     Active Substance: LOSARTAN
     Indication: HYPERTENSION
     Dosage: STRENGHT : 100 MG.
     Route: 048
     Dates: start: 20140405
  3. PARACETAMOL [Concomitant]
     Active Substance: ACETAMINOPHEN
     Indication: PAIN
     Dosage: STRENGHT : 665 MG.
     Route: 048
     Dates: start: 20191024
  4. MAGNESIA ^MEDIC^ [Concomitant]
     Indication: CONSTIPATION
     Dosage: STRENGHT : 500 MG.
     Route: 048
     Dates: start: 20191108
  5. CLOPIDOGREL [Suspect]
     Active Substance: CLOPIDOGREL BISULFATE
     Indication: THROMBOSIS PROPHYLAXIS
     Dosage: STRENGTH : 75 MG
     Route: 048
     Dates: start: 20170809, end: 20191204
  6. UNIKALK MED D-VITAMIN [Concomitant]
     Indication: MINERAL SUPPLEMENTATION
     Dosage: STRENGHT : 400 MG + 19 MICROGRAM TABLET
     Route: 048
     Dates: start: 20150625
  7. SERTRALINE [Concomitant]
     Active Substance: SERTRALINE HYDROCHLORIDE
     Indication: DEPRESSION
     Dosage: STRENGHT : 50 MG.
     Route: 048
     Dates: start: 20180419

REACTIONS (2)
  - Faeces discoloured [Unknown]
  - Gastrointestinal haemorrhage [Unknown]

NARRATIVE: CASE EVENT DATE: 201912
